FAERS Safety Report 21937013 (Version 1)
Quarter: 2023Q1

REPORT INFORMATION
  Report Type: Spontaneous
  Country: US (occurrence: None)
  Receive Date: 20230131
  Receipt Date: 20230131
  Transmission Date: 20230418
  Serious: Yes (Disabling, Other)
  Sender: FDA-Public Use
  Company Number: None

PATIENT
  Age: 42 Year
  Sex: Female
  Weight: 47.25 kg

DRUGS (1)
  1. ZYRTEC [Suspect]
     Active Substance: CETIRIZINE HYDROCHLORIDE
     Indication: Seasonal allergy
     Dosage: FREQUENCY : DAILY;?
     Route: 048
     Dates: start: 20221201, end: 20230126

REACTIONS (3)
  - Urticaria [None]
  - Urticaria [None]
  - Insomnia [None]

NARRATIVE: CASE EVENT DATE: 20230127
